FAERS Safety Report 24016599 (Version 1)
Quarter: 2024Q2

REPORT INFORMATION
  Report Type: Spontaneous
  Country: CN (occurrence: CN)
  Receive Date: 20240626
  Receipt Date: 20240626
  Transmission Date: 20240716
  Serious: Yes (Death)
  Sender: FDA-Public Use
  Company Number: CN-ELI_LILLY_AND_COMPANY-CN202406016761

PATIENT

DRUGS (1)
  1. OLUMIANT [Suspect]
     Active Substance: BARICITINIB
     Indication: Pneumonia
     Dosage: 4 MG, UNKNOWN
     Route: 048

REACTIONS (3)
  - Death [Fatal]
  - Cryptococcosis [Unknown]
  - Off label use [Unknown]
